FAERS Safety Report 16509822 (Version 1)
Quarter: 2019Q3

REPORT INFORMATION
  Report Type: Spontaneous
  Country: US (occurrence: US)
  Receive Date: 20190701
  Receipt Date: 20190701
  Transmission Date: 20191004
  Serious: No
  Sender: FDA-Public Use
  Company Number: US-TEVA-2019-US-1061912

PATIENT
  Sex: Female

DRUGS (1)
  1. JUNEL FE 1/20 [Suspect]
     Active Substance: ETHINYL ESTRADIOL\NORETHINDRONE ACETATE
     Dosage: THREE WEEKS
     Route: 065

REACTIONS (5)
  - Insomnia [Unknown]
  - Sluggishness [Unknown]
  - Depression [Unknown]
  - Pruritus genital [Unknown]
  - Genital swelling [Unknown]
